FAERS Safety Report 15776515 (Version 1)
Quarter: 2018Q4

REPORT INFORMATION
  Report Type: Spontaneous
  Country: PK (occurrence: PK)
  Receive Date: 20181231
  Receipt Date: 20181231
  Transmission Date: 20190205
  Serious: Yes (Death, Other)
  Sender: FDA-Public Use
  Company Number: PK-JNJFOC-20181231371

PATIENT
  Age: 28 Year
  Sex: Female
  Weight: 29 kg

DRUGS (9)
  1. SIRTURO [Suspect]
     Active Substance: BEDAQUILINE FUMARATE
     Indication: TUBERCULOSIS
     Route: 048
     Dates: start: 20170513, end: 20181017
  2. ETHIONAMIDE [Suspect]
     Active Substance: ETHIONAMIDE
     Indication: TUBERCULOSIS
     Route: 048
     Dates: start: 20170513, end: 20181017
  3. VITAMIN B6 [Concomitant]
     Active Substance: PYRIDOXINE HYDROCHLORIDE
     Indication: PROPHYLAXIS
     Route: 048
     Dates: start: 20170513
  4. AMIKACIN. [Suspect]
     Active Substance: AMIKACIN
     Indication: TUBERCULOSIS
     Route: 030
     Dates: start: 20170513, end: 20181017
  5. PYRAZINAMIDE. [Suspect]
     Active Substance: PYRAZINAMIDE
     Indication: TUBERCULOSIS
     Route: 048
     Dates: start: 20170513, end: 20181017
  6. MOXIFLOXACIN. [Suspect]
     Active Substance: MOXIFLOXACIN
     Indication: TUBERCULOSIS
     Route: 048
     Dates: start: 20170513, end: 20181017
  7. CYCLOSERINE. [Suspect]
     Active Substance: CYCLOSERINE
     Indication: TUBERCULOSIS
     Route: 048
     Dates: start: 20170513, end: 20181017
  8. PARA-AMINOSALICYLIC ACID [Suspect]
     Active Substance: AMINOSALICYLIC ACID
     Indication: TUBERCULOSIS
     Route: 048
     Dates: start: 20170513, end: 20181017
  9. LINEZOLID. [Suspect]
     Active Substance: LINEZOLID
     Indication: TUBERCULOSIS
     Route: 048
     Dates: start: 20170513, end: 20181017

REACTIONS (4)
  - Tuberculosis [Unknown]
  - Intentional product use issue [Unknown]
  - Dyspnoea [Fatal]
  - Off label use [Unknown]

NARRATIVE: CASE EVENT DATE: 20181003
